FAERS Safety Report 21155195 (Version 1)
Quarter: 2022Q3

REPORT INFORMATION
  Report Type: Spontaneous
  Country: US (occurrence: None)
  Receive Date: 20220731
  Receipt Date: 20220731
  Transmission Date: 20221027
  Serious: No
  Sender: FDA-Public Use
  Company Number: None

PATIENT
  Age: 86 Year
  Sex: Female
  Weight: 52.3 kg

DRUGS (15)
  1. PAXLOVID [Suspect]
     Active Substance: NIRMATRELVIR\RITONAVIR
     Indication: COVID-19
     Dosage: FREQUENCY : TWICE A DAY;?
     Route: 048
     Dates: start: 20220713, end: 20220717
  2. ALENDRONIC ACID [Concomitant]
     Active Substance: ALENDRONIC ACID
  3. aspirin 81 mg enteric coated tablet [Concomitant]
  4. acetaminophen 500 mg tablet [Concomitant]
  5. atorvastatin (LIPITOR) 20 mg tablet [Concomitant]
  6. calcium citrate (200 mg Ca) 950 mg tablet [Concomitant]
  7. cholecalciferol (VITAMIN D3) 1,000 unit tablet [Concomitant]
  8. furosemide 40 mg tablet [Concomitant]
  9. glucosam/chon-msm1/C/mang/bosw (GLUCOSAMINE-CHONDROITIN 3X PO) [Concomitant]
  10. krill-om-3-dha-epa-phospho-ast (KRILL OIL) 500-150-45-75 mg cap [Concomitant]
  11. LISINOPRIL [Concomitant]
     Active Substance: LISINOPRIL
  12. melatonin 3 mg tablet [Concomitant]
  13. melatonin 3 mg tablet [Concomitant]
  14. PRADAXA 75 mg capsule [Concomitant]
  15. VIT C/VITE AC/LUT/COPPER/ZNOX (PRESERVISION LUTEIN PO) [Concomitant]

REACTIONS (2)
  - Rebound effect [None]
  - SARS-CoV-2 test positive [None]

NARRATIVE: CASE EVENT DATE: 20220723
